FAERS Safety Report 7538803-7 (Version None)
Quarter: 2011Q2

REPORT INFORMATION
  Report Type: 
  Country: None (occurrence: None)
  Receive Date: 20110610
  Receipt Date: 20090809
  Transmission Date: 20111010
  Serious: Yes (Hospitalization, Other)
  Sender: FDA-Public Use
  Company Number: US-BAYER-200929360NA

PATIENT
  Age: 74 Year
  Sex: Male
  Weight: 59 kg

DRUGS (10)
  1. DIGOXIN [Concomitant]
     Dosage: 0.25 MG, UNK
     Route: 048
  2. ANCEF [Concomitant]
     Dosage: 1 G, UNK
  3. VANCOMYCIN [Concomitant]
     Dosage: 1500 MG, UNK
  4. ACETYLSALICYLIC ACID SRT [Concomitant]
  5. TRASYLOL [Suspect]
     Indication: CORONARY ARTERY BYPASS
     Dosage: 200 CC, THEN INFUSION OF 50 CC/HOUR
     Route: 042
     Dates: start: 20051010, end: 20051010
  6. ALBUTEROL SULFATE AUTOHALER [Concomitant]
     Dosage: INHALED VIA NEBULIZER
  7. TOPRAL [Concomitant]
     Dosage: 25 MG, QD
  8. MANNITOL [Concomitant]
     Dosage: 37.5 MG, UNK
  9. HEPARIN [Concomitant]
     Dosage: 7500
  10. LASIX [Concomitant]
     Dosage: 20 MG, UNK

REACTIONS (13)
  - UNEVALUABLE EVENT [None]
  - RENAL INJURY [None]
  - ANXIETY [None]
  - RENAL IMPAIRMENT [None]
  - RENAL FAILURE [None]
  - FEAR [None]
  - ERECTILE DYSFUNCTION [None]
  - LETHARGY [None]
  - STRESS [None]
  - EMOTIONAL DISTRESS [None]
  - INJURY [None]
  - PAIN [None]
  - AMNESIA [None]
